FAERS Safety Report 13737834 (Version 1)
Quarter: 2017Q3

REPORT INFORMATION
  Report Type: Spontaneous
  Country: US (occurrence: US)
  Receive Date: 20170710
  Receipt Date: 20170710
  Transmission Date: 20171127
  Serious: Yes (Other)
  Sender: FDA-Public Use
  Company Number: US-SAOL THERAPEUTICS-2016SAO00589

PATIENT
  Age: 30 Year
  Sex: Male

DRUGS (2)
  1. LIORESAL [Suspect]
     Active Substance: BACLOFEN
     Indication: MUSCLE SPASTICITY
  2. LIORESAL [Suspect]
     Active Substance: BACLOFEN
     Indication: CEREBRAL PALSY
     Dosage: 150 ?G, \DAY
     Route: 037

REACTIONS (3)
  - Complication associated with device [Recovered/Resolved]
  - Therapeutic response decreased [Recovered/Resolved]
  - Drug withdrawal syndrome [Recovered/Resolved]

NARRATIVE: CASE EVENT DATE: 201606
